FAERS Safety Report 4384403-X (Version None)
Quarter: 2004Q2

REPORT INFORMATION
  Report Type: 
  Country: None (occurrence: None)
  Receive Date: 20040621
  Receipt Date: 20040614
  Transmission Date: 20050107
  Serious: Yes (Other)
  Sender: FDA-Public Use
  Company Number: 2004201860DE

PATIENT
  Sex: Female

DRUGS (1)
  1. CLINDAMYCIN [Suspect]
     Indication: JAW INFLAMMATION
     Dosage: ORAL
     Route: 048

REACTIONS (3)
  - PAIN IN EXTREMITY [None]
  - PERONEAL NERVE PALSY [None]
  - WALKING AID USER [None]
